FAERS Safety Report 12338942 (Version 7)
Quarter: 2017Q2

REPORT INFORMATION
  Report Type: Spontaneous
  Country: GB (occurrence: GB)
  Receive Date: 20160505
  Receipt Date: 20170509
  Transmission Date: 20170830
  Serious: Yes (Death, Hospitalization)
  Sender: FDA-Public Use
  Company Number: GB-PFIZER INC-2016239660

PATIENT
  Age: 18 Year
  Sex: Male

DRUGS (4)
  1. TRAMADOL HCL [Suspect]
     Active Substance: TRAMADOL HYDROCHLORIDE
     Dosage: UNK
  2. LYRICA [Suspect]
     Active Substance: PREGABALIN
     Dosage: UNK
  3. PHENAZEPAM [Suspect]
     Active Substance: PHENAZEPAM
  4. DIAZEPAM. [Suspect]
     Active Substance: DIAZEPAM

REACTIONS (5)
  - Accidental overdose [Fatal]
  - Prescription drug used without a prescription [Fatal]
  - Substance use [Fatal]
  - Coma [Unknown]
  - Myocardial infarction [Unknown]
